FAERS Safety Report 7952299-2 (Version None)
Quarter: 2011Q4

REPORT INFORMATION
  Report Type: 
  Country: None (occurrence: None)
  Receive Date: 20111129
  Receipt Date: 20111114
  Transmission Date: 20120403
  Serious: Yes (Hospitalization)
  Sender: FDA-Public Use
  Company Number: JP-2011-12053

PATIENT
  Age: 47 Year
  Sex: Male

DRUGS (1)
  1. PLETAL [Suspect]
     Indication: CAROTID ARTERY OCCLUSION
     Dosage: ORAL; ORAL
     Route: 048
     Dates: end: 20030501

REACTIONS (1)
  - ARTERY DISSECTION [None]
